FAERS Safety Report 5504230-7 (Version None)
Quarter: 2007Q4

REPORT INFORMATION
  Report Type: 
  Country: None (occurrence: None)
  Receive Date: 20071101
  Receipt Date: 20071024
  Transmission Date: 20080405
  Serious: Yes (Other)
  Sender: FDA-Public Use
  Company Number: US-JNJFOC-20071007131

PATIENT
  Sex: Male
  Weight: 34.93 kg

DRUGS (3)
  1. CHILDREN'S MOTRIN [Suspect]
     Route: 048
  2. CHILDREN'S MOTRIN [Suspect]
     Indication: EAR PAIN
     Route: 048
  3. AUGMENTIN '125' [Concomitant]
     Indication: EAR INFECTION

REACTIONS (2)
  - MEDICATION TAMPERING [None]
  - THROAT IRRITATION [None]
